FAERS Safety Report 9693713 (Version 4)
Quarter: 2014Q3

REPORT INFORMATION
  Report Type: Spontaneous
  Country: GB (occurrence: GB)
  Receive Date: 20131118
  Receipt Date: 20140909
  Transmission Date: 20150326
  Serious: Yes (Life-Threatening, Other)
  Sender: FDA-Public Use
  Company Number: GB-TEVA-418692ISR

PATIENT
  Age: 79 Year
  Sex: Male
  Weight: 86 kg

DRUGS (3)
  1. ASPIRIN. [Concomitant]
     Active Substance: ASPIRIN
     Dates: start: 20130311
  2. SIMVASTATIN. [Suspect]
     Active Substance: SIMVASTATIN
     Indication: ESSENTIAL HYPERTENSION
     Dosage: TAKEN OVER A PERIOD OF 7 YEARS
     Route: 048
     Dates: end: 20130702
  3. BETAMETHASONE VALERATE. [Concomitant]
     Active Substance: BETAMETHASONE VALERATE
     Dates: start: 20130321, end: 20130420

REACTIONS (3)
  - Obstructive airways disorder [Recovered/Resolved]
  - Swollen tongue [Recovered/Resolved]
  - Bronchospasm [Recovered/Resolved]

NARRATIVE: CASE EVENT DATE: 20130702
